FAERS Safety Report 13692376 (Version 2)
Quarter: 2017Q2

REPORT INFORMATION
  Report Type: Report from Study
  Country: None (occurrence: BR)
  Receive Date: 20170627
  Receipt Date: 20170630
  Transmission Date: 20170830
  Serious: Yes (Other)
  Sender: FDA-Public Use
  Company Number: BR-ABBVIE-14K-020-1266260-00

PATIENT
  Age: 57 Year
  Sex: Male
  Weight: 77 kg

DRUGS (9)
  1. DICLOFENAC [Concomitant]
     Active Substance: DICLOFENAC
     Indication: RHEUMATOID ARTHRITIS
     Route: 048
     Dates: start: 2012
  2. PREDNISONE. [Concomitant]
     Active Substance: PREDNISONE
     Route: 048
     Dates: start: 2014
  3. METHOTREXATE. [Suspect]
     Active Substance: METHOTREXATE
     Route: 048
     Dates: start: 2014
  4. HUMIRA [Suspect]
     Active Substance: ADALIMUMAB
     Indication: RHEUMATOID ARTHRITIS
     Route: 058
     Dates: start: 20130322
  5. METHOTREXATE. [Suspect]
     Active Substance: METHOTREXATE
     Indication: RHEUMATOID ARTHRITIS
     Route: 048
     Dates: start: 2012
  6. OMEPRAZOLE. [Concomitant]
     Active Substance: OMEPRAZOLE
     Indication: GASTRIC DISORDER
     Route: 048
     Dates: start: 2012
  7. PREDNISONE. [Concomitant]
     Active Substance: PREDNISONE
     Indication: RHEUMATOID ARTHRITIS
     Route: 048
     Dates: start: 2012
  8. FOLIC ACID. [Concomitant]
     Active Substance: FOLIC ACID
     Indication: RHEUMATOID ARTHRITIS
     Route: 048
     Dates: start: 2012
  9. GLUCOSAMINE [Concomitant]
     Active Substance: GLUCOSAMINE
     Indication: CHONDROPATHY
     Route: 048
     Dates: start: 2013

REACTIONS (6)
  - Weight decreased [Recovered/Resolved]
  - Joint lock [Unknown]
  - Decreased appetite [Recovered/Resolved]
  - Asthenia [Recovering/Resolving]
  - Pain [Recovering/Resolving]
  - Platelet count decreased [Unknown]

NARRATIVE: CASE EVENT DATE: 201311
